FAERS Safety Report 7485093-X (Version None)
Quarter: 2011Q2

REPORT INFORMATION
  Report Type: 
  Country: None (occurrence: None)
  Receive Date: 20110517
  Receipt Date: 20101115
  Transmission Date: 20111010
  Serious: No
  Sender: FDA-Public Use
  Company Number: US-BAYER-2010-005486

PATIENT
  Age: 45 Year
  Sex: Male
  Weight: 230 kg

DRUGS (2)
  1. ADVAIR DISKUS 100/50 [Concomitant]
     Dosage: UNK
     Route: 048
  2. ALEVE (CAPLET) [Suspect]
     Indication: TOOTHACHE
     Dosage: UNK
     Route: 048
     Dates: start: 20101115

REACTIONS (1)
  - BLOOD DISORDER [None]
